FAERS Safety Report 4341798-0 (Version None)
Quarter: 2004Q2

REPORT INFORMATION
  Report Type: 
  Country: None (occurrence: None)
  Receive Date: 20040420
  Receipt Date: 20001023
  Transmission Date: 20050107
  Serious: Yes (Hospitalization)
  Sender: FDA-Public Use
  Company Number: FR-GLAXOSMITHKLINE-B0090908A

PATIENT
  Age: 1 Day
  Sex: Male
  Weight: 3.4 kg

DRUGS (5)
  1. LAMIVUDINE [Suspect]
     Indication: HUMAN IMMUNODEFICIENCY VIRUS TRANSMISSION
     Route: 048
     Dates: start: 19980820, end: 19980930
  2. ZIDOVUDINE [Suspect]
     Indication: HUMAN IMMUNODEFICIENCY VIRUS TRANSMISSION
     Route: 048
     Dates: start: 19980820, end: 19980930
  3. LAMIVUDINE [Suspect]
     Indication: HIV INFECTION
     Route: 048
  4. ZIDOVUDINE [Suspect]
     Indication: HIV INFECTION
     Route: 048
  5. PENICILLIN G [Concomitant]
     Route: 065

REACTIONS (17)
  - ACQUIRED MACROCEPHALY [None]
  - ANAEMIA [None]
  - AUTISM [None]
  - BLOOD LACTIC ACID ABNORMAL [None]
  - CARDIAC MURMUR [None]
  - COMMUNICATION DISORDER [None]
  - CONSTIPATION [None]
  - DIFFICULTY IN WALKING [None]
  - EDUCATIONAL PROBLEM [None]
  - HYPERTONIA [None]
  - INVESTIGATION ABNORMAL [None]
  - MEAN CELL VOLUME INCREASED [None]
  - NEUTROPENIA [None]
  - PSYCHOMOTOR SKILLS IMPAIRED [None]
  - PSYCHOTIC DISORDER [None]
  - RESTLESSNESS [None]
  - TREMOR [None]
